FAERS Safety Report 7451971-0 (Version None)
Quarter: 2011Q2

REPORT INFORMATION
  Report Type: 
  Country: None (occurrence: None)
  Receive Date: 20110502
  Receipt Date: 20110426
  Transmission Date: 20111010
  Serious: Yes (Other)
  Sender: FDA-Public Use
  Company Number: PHHY2011KR34808

PATIENT
  Age: 80 Year
  Sex: Female

DRUGS (3)
  1. CIMETIDINE [Suspect]
     Dosage: UNK UKN, UNK
  2. CHLORPHENIRAMINE MALEATE [Concomitant]
     Dosage: UNK UKN, UNK
  3. ACETAMINOPHEN [Concomitant]
     Dosage: UNK UKN, UNK

REACTIONS (12)
  - DYSPNOEA [None]
  - ANAPHYLACTIC REACTION [None]
  - DIZZINESS [None]
  - BLOOD PRESSURE DECREASED [None]
  - URTICARIA [None]
  - CONFUSIONAL STATE [None]
  - MYOCARDIAL ISCHAEMIA [None]
  - SKIN TEST POSITIVE [None]
  - WHEEZING [None]
  - ACCIDENTAL EXPOSURE [None]
  - CHEST DISCOMFORT [None]
  - SWELLING FACE [None]
